FAERS Safety Report 8882456 (Version 2)
Quarter: 2013Q2

REPORT INFORMATION
  Report Type: Report from Study
  Country: JP (occurrence: JP)
  Receive Date: 20121103
  Receipt Date: 20130620
  Transmission Date: 20140414
  Serious: Yes (Other)
  Sender: FDA-Public Use
  Company Number: JP-009507513-2012SP034966

PATIENT
  Age: 60 Year
  Sex: Male
  Weight: 79 kg

DRUGS (11)
  1. PEGINTRON [Suspect]
     Indication: CHRONIC HEPATITIS C
     Dosage: 1.26 ?G/KG, QW
     Route: 058
     Dates: start: 20120605
  2. PEGINTRON [Suspect]
     Dosage: 1.3 MICROGRAM PER KILOGRAM, QW
     Route: 058
  3. REBETOL [Suspect]
     Indication: CHRONIC HEPATITIS C
     Dosage: 800 MG, QD
     Route: 048
     Dates: start: 20120605, end: 20120717
  4. REBETOL [Suspect]
     Dosage: 600 MG, QD
     Route: 048
     Dates: start: 20120718
  5. TELAVIC [Suspect]
     Indication: CHRONIC HEPATITIS C
     Dosage: 2250 MG, QD
     Route: 048
     Dates: start: 20120605
  6. DICLOFENAC [Concomitant]
     Indication: PYREXIA
     Dosage: INDICATION: FEVER, ARTHRALGIA AND MALAISE
     Route: 065
     Dates: start: 20120605
  7. URSO [Concomitant]
     Indication: CHRONIC HEPATITIS C
     Dosage: 400 MG, QD (FORMULATION: POR)
     Route: 048
  8. NORVASC [Concomitant]
     Indication: HYPERTENSION
     Dosage: 5 MG, QD (FORMULATION: POR)
     Route: 048
  9. GASTROINTESTINAL PREPARATIONS (UNSPECIFIED) [Concomitant]
     Indication: GASTRIC ULCER
     Dosage: 300 MG, QD (FORMULATION POR)
     Route: 048
  10. GASTROINTESTINAL PREPARATIONS (UNSPECIFIED) [Concomitant]
     Dosage: 150 MG, QD (FORMULATION POR)
     Route: 048
  11. ALLEGRA [Concomitant]
     Indication: PROPHYLAXIS
     Dosage: 120 MG, QD (FORMULATION: POR)

REACTIONS (4)
  - Hyperuricaemia [Recovered/Resolved]
  - Rash [Not Recovered/Not Resolved]
  - Renal impairment [Recovered/Resolved]
  - Rash [Recovered/Resolved]
